FAERS Safety Report 8610003 (Version 3)
Quarter: 2013Q2

REPORT INFORMATION
  Report Type: Report from Study
  Country: MX (occurrence: MX)
  Receive Date: 20120612
  Receipt Date: 20130509
  Transmission Date: 20140414
  Serious: Yes (Death, Hospitalization, Other)
  Sender: FDA-Public Use
  Company Number: PHHY2012MX049902

PATIENT
  Age: 88 Year
  Sex: Female

DRUGS (3)
  1. EXFORGE [Suspect]
     Indication: HYPERTENSION
     Dosage: 1 DF QD (160 MG VAL /5 MG AMLO)  DAILY
     Dates: start: 2010, end: 201203
  2. TEGRETOL [Suspect]
  3. PENTOXIFYLLINE [Concomitant]

REACTIONS (9)
  - Cardiac arrest [Fatal]
  - Respiratory arrest [Fatal]
  - Guillain-Barre syndrome [Unknown]
  - Movement disorder [Unknown]
  - Quadriplegia [Unknown]
  - Vertigo [Recovered/Resolved]
  - Diarrhoea [Recovered/Resolved]
  - Abdominal pain [Recovered/Resolved]
  - Asthenia [Recovering/Resolving]
